FAERS Safety Report 12644990 (Version 1)
Quarter: 2016Q3

REPORT INFORMATION
  Report Type: Report from Study
  Country: CA (occurrence: CA)
  Receive Date: 20160811
  Receipt Date: 20160811
  Transmission Date: 20161109
  Serious: Yes (Hospitalization)
  Sender: FDA-Public Use
  Company Number: CA-JNJFOC-20160806881

PATIENT
  Age: 55 Year
  Sex: Female
  Weight: 50.1 kg

DRUGS (3)
  1. REMICADE [Suspect]
     Active Substance: INFLIXIMAB
     Indication: CROHN^S DISEASE
     Route: 042
     Dates: start: 20151119
  2. LAMIVUDINE. [Concomitant]
     Active Substance: LAMIVUDINE
     Route: 065
  3. PRIMIDONE. [Concomitant]
     Active Substance: PRIMIDONE
     Route: 065

REACTIONS (1)
  - Abscess intestinal [Unknown]

NARRATIVE: CASE EVENT DATE: 20160721
